FAERS Safety Report 14477930 (Version 3)
Quarter: 2018Q1

REPORT INFORMATION
  Report Type: Spontaneous
  Country: US (occurrence: US)
  Receive Date: 20180201
  Receipt Date: 20180209
  Transmission Date: 20180509
  Serious: Yes (Other)
  Sender: FDA-Public Use
  Company Number: US-GLAXOSMITHKLINE-US2018GSK015145

PATIENT
  Sex: Male

DRUGS (3)
  1. FLOLAN [Suspect]
     Active Substance: EPOPROSTENOL SODIUM
     Indication: PULMONARY HYPERTENSION
     Dosage: 30 DF, CO
     Dates: start: 20170623
  2. ADCIRCA [Concomitant]
     Active Substance: TADALAFIL
  3. FLOLAN DILUENT PH 12 SOLUTION FOR INJECTION [Suspect]
     Active Substance: GLYCINE\MANNITOL\SODIUM CHLORIDE
     Indication: PULMONARY HYPERTENSION
     Dosage: UNK
     Dates: start: 20170623

REACTIONS (4)
  - Complication associated with device [Unknown]
  - Emergency care examination [Unknown]
  - Thrombosis [Unknown]
  - Central venous catheterisation [Unknown]
